FAERS Safety Report 18797304 (Version 1)
Quarter: 2021Q1

REPORT INFORMATION
  Report Type: Spontaneous
  Country: JP (occurrence: JP)
  Receive Date: 20210128
  Receipt Date: 20210128
  Transmission Date: 20210419
  Serious: Yes (Hospitalization, Other)
  Sender: FDA-Public Use
  Company Number: JP-APOTEX-2021AP001859

PATIENT
  Age: 77 Year
  Sex: Female

DRUGS (1)
  1. PAXIL CR [Suspect]
     Active Substance: PAROXETINE HYDROCHLORIDE
     Indication: DEPRESSION
     Dosage: 18.75 MG
     Route: 048

REACTIONS (4)
  - Femur fracture [Unknown]
  - Wrong technique in product usage process [Unknown]
  - Balance disorder [Unknown]
  - Product use issue [Unknown]
